FAERS Safety Report 8475876-1 (Version None)
Quarter: 2012Q2

REPORT INFORMATION
  Report Type: 
  Country: None (occurrence: None)
  Receive Date: 20120628
  Receipt Date: 20120625
  Transmission Date: 20120825
  Serious: Yes (Hospitalization, Other)
  Sender: FDA-Public Use
  Company Number: US-PFIZER INC-2012133659

PATIENT
  Sex: Male
  Weight: 98 kg

DRUGS (5)
  1. IBUPROFEN (ADVIL) [Suspect]
     Indication: INFLUENZA LIKE ILLNESS
     Dosage: UNK
     Dates: start: 20111201
  2. REBIF [Suspect]
     Dosage: 44 UG, ALTERNATE DAY
     Route: 058
  3. ACETAMINOPHEN [Concomitant]
     Indication: PREMEDICATION
     Dosage: UNK
  4. TEMAZEPAM [Concomitant]
     Indication: INSOMNIA
     Dosage: UNK
  5. REBIF [Suspect]
     Indication: RELAPSING-REMITTING MULTIPLE SCLEROSIS
     Dosage: 44 UG, 3X/WEEK
     Route: 058
     Dates: start: 20110301

REACTIONS (13)
  - COORDINATION ABNORMAL [None]
  - GASTROINTESTINAL ULCER HAEMORRHAGE [None]
  - GASTROINTESTINAL ULCER [None]
  - VISION BLURRED [None]
  - INJECTION SITE REACTION [None]
  - INFLUENZA LIKE ILLNESS [None]
  - MUSCULOSKELETAL PAIN [None]
  - DRUG HYPERSENSITIVITY [None]
  - MULTIPLE SCLEROSIS RELAPSE [None]
  - HYPOVOLAEMIA [None]
  - GAIT DISTURBANCE [None]
  - DYSSTASIA [None]
  - FATIGUE [None]
